FAERS Safety Report 19750422 (Version 1)
Quarter: 2021Q3

REPORT INFORMATION
  Report Type: Spontaneous
  Country: US (occurrence: US)
  Receive Date: 20210826
  Receipt Date: 20210826
  Transmission Date: 20211014
  Serious: No
  Sender: FDA-Public Use
  Company Number: None

PATIENT
  Age: 66 Year
  Sex: Male
  Weight: 103.5 kg

DRUGS (7)
  1. ELLLIQUIS [Concomitant]
  2. METFORMIN [Concomitant]
     Active Substance: METFORMIN HYDROCHLORIDE
  3. LIPITOR [Concomitant]
     Active Substance: ATORVASTATIN CALCIUM
  4. SODIUM BICARB [Concomitant]
     Active Substance: SODIUM BICARBONATE
  5. MULTI VITAMIN [Concomitant]
     Active Substance: VITAMINS
  6. DEFINITY [Suspect]
     Active Substance: PERFLUTREN
     Indication: ECHOCARDIOGRAM
     Dates: start: 20210824, end: 20210824
  7. ATENOLOL. [Concomitant]
     Active Substance: ATENOLOL

REACTIONS (4)
  - Headache [None]
  - Pyrexia [None]
  - Back pain [None]
  - Contusion [None]

NARRATIVE: CASE EVENT DATE: 20210824
